FAERS Safety Report 7763091-6 (Version None)
Quarter: 2011Q3

REPORT INFORMATION
  Report Type: 
  Country: None (occurrence: None)
  Receive Date: 20110920
  Receipt Date: 20101102
  Transmission Date: 20111222
  Serious: No
  Sender: FDA-Public Use
  Company Number: US-BAUSCH-2010BL006195

PATIENT
  Sex: Male

DRUGS (3)
  1. SYSTANE [Concomitant]
     Indication: DRY EYE
     Route: 047
  2. ERYTHROCIN 1% [Suspect]
     Indication: DRY EYE
     Route: 047
     Dates: start: 20100101
  3. GENTEAL [Concomitant]
     Indication: DRY EYE
     Route: 047

REACTIONS (1)
  - VISUAL BRIGHTNESS [None]
